FAERS Safety Report 7144570 (Version 3)
Quarter: 2012Q4

REPORT INFORMATION
  Report Type: 
  Country: US (occurrence: US)
  Receive Date: 20091009
  Receipt Date: 20120905
  Transmission Date: 20130627
  Serious: Yes (Hospitalization)
  Sender: FDA-Public Use
  Company Number: US-BAYER-200934749NA

PATIENT
  Age: 37 Year
  Sex: Female
  Weight: 79.37 kg

DRUGS (5)
  1. YAZ [Suspect]
     Indication: CONTRACEPTION
     Dosage: 1 DF (Daily Dose), QD, oral
     Route: 048
     Dates: start: 200706, end: 200708
  2. ORTHO TRI CYCLEN [Concomitant]
     Indication: CONTRACEPTION
     Dosage: UNK UNK, QD
  3. METRONIDAZOLE [Concomitant]
     Dosage: 500 mg, UNK
     Dates: start: 20070411, end: 20070625
  4. MOTRIN [Concomitant]
     Indication: MUSCLE SPASMS
     Dosage: UNK UNK, PRN
  5. TRINESSA [Concomitant]
     Dosage: one daily
     Route: 048

REACTIONS (2)
  - Pulmonary embolism [None]
  - Thrombosis [None]
